FAERS Safety Report 5247917-6 (Version None)
Quarter: 2007Q1

REPORT INFORMATION
  Report Type: 
  Country: None (occurrence: None)
  Receive Date: 20070226
  Receipt Date: 20070226
  Transmission Date: 20070707
  Serious: Yes (Other)
  Sender: FDA-Public Use
  Company Number: None

PATIENT

DRUGS (5)
  1. HEPARIN SODIUM [Suspect]
     Indication: ANTICOAGULANT THERAPY
     Dosage: 21,000 UNIT IV
     Route: 042
     Dates: start: 20070222
  2. HEPARIN SODIUM [Suspect]
     Indication: SURGERY
     Dosage: 21,000 UNIT IV
     Route: 042
     Dates: start: 20070222
  3. HEPARIN SODIUM [Suspect]
     Indication: ANTICOAGULANT THERAPY
     Dosage: 8,000 UNIT IV
     Route: 042
     Dates: start: 20070222
  4. HEPARIN SODIUM [Suspect]
     Indication: SURGERY
     Dosage: 8,000 UNIT IV
     Route: 042
     Dates: start: 20070222
  5. ANESTHESIA [Concomitant]

REACTIONS (2)
  - DRUG INEFFECTIVE [None]
  - PROCEDURAL COMPLICATION [None]
